FAERS Safety Report 4615920-2 (Version None)
Quarter: 2005Q1

REPORT INFORMATION
  Report Type: 
  Country: None (occurrence: None)
  Receive Date: 20050318
  Receipt Date: 20050316
  Transmission Date: 20050727
  Serious: Yes (Death)
  Sender: FDA-Public Use
  Company Number: J081-002-001899

PATIENT
  Age: 86 Year
  Sex: Female

DRUGS (6)
  1. ARICEPT [Suspect]
     Indication: DEMENTIA ALZHEIMER'S TYPE
     Dosage: ORAL
     Route: 048
     Dates: end: 20050308
  2. LISINOPRIL [Concomitant]
  3. FUROSEMIDE [Concomitant]
  4. PROCATEROL HCL [Concomitant]
  5. PURSENNID (SENNA LEAF) [Concomitant]
  6. RISPERDAL [Concomitant]

REACTIONS (3)
  - ASTHMA [None]
  - MIOSIS [None]
  - SUDDEN DEATH [None]
